FAERS Safety Report 5885341-3 (Version None)
Quarter: 2008Q3

REPORT INFORMATION
  Report Type: 
  Country: None (occurrence: None)
  Receive Date: 20080916
  Receipt Date: 20080904
  Transmission Date: 20090109
  Serious: Yes (Hospitalization, Other)
  Sender: FDA-Public Use
  Company Number: ZA-PFIZER INC-2008074950

PATIENT
  Age: 55 Year
  Sex: Female

DRUGS (14)
  1. LYRICA [Suspect]
     Route: 048
  2. ANAESTHETICS, GENERAL [Suspect]
  3. ENOXAPARIN SODIUM [Concomitant]
  4. ALL OTHER THERAPEUTIC PRODUCTS [Concomitant]
  5. VALSARTAN [Concomitant]
  6. AVELON [Concomitant]
  7. CORDARONE [Concomitant]
  8. TAVANIC [Concomitant]
  9. ATIVAN [Concomitant]
  10. CARVEDILOL [Concomitant]
  11. BREVA [Concomitant]
  12. URIZONE [Concomitant]
  13. MEDASPOR [Concomitant]
  14. MERONEM [Concomitant]

REACTIONS (1)
  - MYASTHENIA GRAVIS [None]
